FAERS Safety Report 8263297-6 (Version None)
Quarter: 2012Q2

REPORT INFORMATION
  Report Type: 
  Country: None (occurrence: None)
  Receive Date: 20120405
  Receipt Date: 20120330
  Transmission Date: 20120825
  Serious: Yes (Hospitalization)
  Sender: FDA-Public Use
  Company Number: SE-B.I. PHARMACEUTICALS,INC./RIDGEFIELD-2012-SW-00271SW

PATIENT

DRUGS (1)
  1. PRADAXA [Suspect]

REACTIONS (2)
  - SEGMENTED HYALINISING VASCULITIS [None]
  - SKIN ULCER [None]
